FAERS Safety Report 4535823-1 (Version None)
Quarter: 2004Q4

REPORT INFORMATION
  Report Type: 
  Country: None (occurrence: None)
  Receive Date: 20041223
  Receipt Date: 20040407
  Transmission Date: 20050328
  Serious: No
  Sender: FDA-Public Use
  Company Number: US-GLAXOSMITHKLINE-A0506230A

PATIENT
  Age: 71 Year
  Sex: Male

DRUGS (11)
  1. FLONASE [Suspect]
     Dosage: 1SPR TWICE PER DAY
     Route: 045
     Dates: start: 19900101, end: 20030101
  2. ZYRTEC [Concomitant]
  3. ASTELIN [Concomitant]
  4. LOPID [Concomitant]
  5. CARTIA XT [Concomitant]
  6. DIOVAN HCT [Concomitant]
  7. LANOXIN [Concomitant]
  8. LIPITOR [Concomitant]
  9. HYTRIN [Concomitant]
  10. XALATAN [Concomitant]
  11. COUMADIN [Concomitant]

REACTIONS (2)
  - EPISTAXIS [None]
  - NASAL DISCOMFORT [None]
